FAERS Safety Report 8462414-2 (Version None)
Quarter: 2012Q2

REPORT INFORMATION
  Report Type: 
  Country: None (occurrence: None)
  Receive Date: 20120625
  Receipt Date: 20120613
  Transmission Date: 20120825
  Serious: Yes (Other)
  Sender: FDA-Public Use
  Company Number: JP-VERTEX PHARMACEUTICALS INC.-AE-2012-008900

PATIENT
  Age: 77 Year
  Sex: Male

DRUGS (6)
  1. PEG-INTRON [Concomitant]
     Indication: HEPATITIS C
     Route: 058
     Dates: start: 20120427, end: 20120511
  2. PEG-INTRON [Concomitant]
     Route: 058
     Dates: start: 20120525, end: 20120525
  3. PEG-INTRON [Concomitant]
     Route: 058
     Dates: start: 20120601, end: 20120601
  4. PEG-INTRON [Concomitant]
     Route: 058
     Dates: start: 20120608
  5. TELAVIC (TELAPREVIR) [Suspect]
     Indication: HEPATITIS C
     Route: 048
     Dates: start: 20120427
  6. RIBAVIRIN [Concomitant]
     Route: 048
     Dates: start: 20120427

REACTIONS (1)
  - NEUTROPHIL COUNT DECREASED [None]
